FAERS Safety Report 21789678 (Version 3)
Quarter: 2023Q1

REPORT INFORMATION
  Report Type: Report from Study
  Country: JP (occurrence: JP)
  Receive Date: 20221228
  Receipt Date: 20230303
  Transmission Date: 20230418
  Serious: Yes (Hospitalization, Other)
  Sender: FDA-Public Use
  Company Number: JP-JNJFOC-20221125095

PATIENT
  Age: 28 Year
  Sex: Female
  Weight: 51 kg

DRUGS (10)
  1. GUSELKUMAB [Suspect]
     Active Substance: GUSELKUMAB
     Indication: Crohn^s disease
     Route: 042
     Dates: start: 20220427
  2. GUSELKUMAB [Suspect]
     Active Substance: GUSELKUMAB
  3. IMURAN [Concomitant]
     Active Substance: AZATHIOPRINE
     Indication: Crohn^s disease
     Route: 048
     Dates: start: 20200401
  4. ALLOPURINOL [Concomitant]
     Active Substance: ALLOPURINOL
     Indication: Crohn^s disease
     Route: 048
     Dates: start: 20200401
  5. FOLIC ACID [Concomitant]
     Active Substance: FOLIC ACID
     Indication: Folate deficiency
     Route: 048
     Dates: start: 20220105
  6. SODIUM PICOSULFATE [Concomitant]
     Active Substance: SODIUM PICOSULFATE
     Dosage: 10 (UNSPECIFIED UNIT)
     Route: 048
     Dates: start: 20220411, end: 20220411
  7. SODIUM PICOSULFATE [Concomitant]
     Active Substance: SODIUM PICOSULFATE
     Dosage: 10 (UNSPECIFIED UNIT)
     Route: 048
     Dates: start: 20220711, end: 20220711
  8. MIDAZOLAM [Concomitant]
     Active Substance: MIDAZOLAM
     Route: 042
     Dates: start: 20220412, end: 20220412
  9. FLUMAZENIL [Concomitant]
     Active Substance: FLUMAZENIL
     Route: 042
     Dates: start: 20220412, end: 20220412
  10. PROPOFOL [Concomitant]
     Active Substance: PROPOFOL
     Dosage: 16 (UNSPECIFIED UNIT)
     Route: 042
     Dates: start: 20220712, end: 20220712

REACTIONS (2)
  - Abortion spontaneous [Recovered/Resolved]
  - Exposure during pregnancy [Recovered/Resolved]

NARRATIVE: CASE EVENT DATE: 20221103
